FAERS Safety Report 13528848 (Version 4)
Quarter: 2017Q2

REPORT INFORMATION
  Report Type: Report from Study
  Country: US (occurrence: US)
  Receive Date: 20170509
  Receipt Date: 20170621
  Transmission Date: 20170830
  Serious: Yes (Hospitalization, Other)
  Sender: FDA-Public Use
  Company Number: US-009507513-1705USA004119

PATIENT
  Age: 70 Year
  Sex: Female

DRUGS (12)
  1. PEMBROLIZUMAB. [Suspect]
     Active Substance: PEMBROLIZUMAB
     Dosage: 200 MG, EVERY 3 WEEKS
     Route: 042
     Dates: start: 20170303, end: 20170303
  2. VITAMIN D [Concomitant]
     Active Substance: CHOLECALCIFEROL
  3. CALCIUM (UNSPECIFIED) [Concomitant]
     Active Substance: CALCIUM
     Dosage: UNK
  4. ZOCOR [Concomitant]
     Active Substance: SIMVASTATIN
     Dosage: UNK
     Route: 048
  5. PEMBROLIZUMAB. [Suspect]
     Active Substance: PEMBROLIZUMAB
     Dosage: 200 MG, EVERY 3 WEEKS
     Route: 042
     Dates: start: 20170422, end: 20170422
  6. DECADRON [Suspect]
     Active Substance: DEXAMETHASONE
     Dosage: 4 MG, EVERY 6 HOURS
     Dates: start: 201703
  7. PROLIA [Concomitant]
     Active Substance: DENOSUMAB
     Dosage: UNK
  8. PROBIOTICS (UNSPECIFIED) [Concomitant]
     Active Substance: PROBIOTICS NOS
     Dosage: UNK
  9. GLUCOSAMINE [Concomitant]
     Active Substance: GLUCOSAMINE
     Dosage: UNK
  10. PEMBROLIZUMAB. [Suspect]
     Active Substance: PEMBROLIZUMAB
     Indication: NON-SMALL CELL LUNG CANCER STAGE IV
     Dosage: 200 MG, EVERY 3 WEEKS
     Route: 042
     Dates: start: 20170124, end: 20170124
  11. EMERGEN C [Concomitant]
     Active Substance: MINERALS\VITAMINS
  12. PEMBROLIZUMAB. [Suspect]
     Active Substance: PEMBROLIZUMAB
     Dosage: 200 MG, EVERY 3 WEEKS
     Route: 042
     Dates: start: 20170324, end: 20170324

REACTIONS (10)
  - Nephritis [Unknown]
  - Pulmonary embolism [Unknown]
  - Vision blurred [Unknown]
  - Cerebrovascular accident [Unknown]
  - Platelet count decreased [Recovering/Resolving]
  - Deep vein thrombosis [Not Recovered/Not Resolved]
  - Seizure [Unknown]
  - Confusional state [Unknown]
  - Disseminated intravascular coagulation [Unknown]
  - Asthenia [Unknown]

NARRATIVE: CASE EVENT DATE: 2017
